FAERS Safety Report 12067410 (Version 1)
Quarter: 2016Q1

REPORT INFORMATION
  Report Type: Spontaneous
  Country: US (occurrence: None)
  Receive Date: 20160210
  Receipt Date: 20160210
  Transmission Date: 20160526
  Serious: Yes (Other)
  Sender: FDA-Public Use
  Company Number: None

PATIENT
  Age: 57 Year
  Sex: Female
  Weight: 92.53 kg

DRUGS (4)
  1. PREVACID [Suspect]
     Active Substance: LANSOPRAZOLE
  2. ZEGRID OTC [Suspect]
     Active Substance: OMEPRAZOLE\SODIUM BICARBONATE
  3. ESEMOPRAZOLE [Suspect]
     Active Substance: ESOMEPRAZOLE
  4. OMEPRAZOLE. [Suspect]
     Active Substance: OMEPRAZOLE

REACTIONS (9)
  - Weight decreased [None]
  - Asthma [None]
  - Abdominal pain [None]
  - Vomiting [None]
  - Drug ineffective [None]
  - Migraine [None]
  - Nausea [None]
  - Epigastric discomfort [None]
  - Drug interaction [None]

NARRATIVE: CASE EVENT DATE: 20160125
